FAERS Safety Report 6718118-7 (Version None)
Quarter: 2010Q2

REPORT INFORMATION
  Report Type: 
  Country: None (occurrence: None)
  Receive Date: 20100510
  Receipt Date: 20100505
  Transmission Date: 20101027
  Serious: Yes (Death)
  Sender: FDA-Public Use
  Company Number: A0858606A

PATIENT
  Age: 58 Year
  Sex: Male

DRUGS (3)
  1. PROMACTA [Suspect]
     Dosage: 75MG PER DAY
     Route: 048
     Dates: start: 20090410, end: 20090528
  2. CORTICOSTEROIDS [Concomitant]
     Dates: start: 20090108
  3. IMMUNE GLOBULIN INTRAVENOUS (HUMAN) [Concomitant]
     Dates: start: 20090305

REACTIONS (2)
  - DEATH [None]
  - DRUG INEFFECTIVE [None]
